FAERS Safety Report 13232781 (Version 2)
Quarter: 2017Q1

REPORT INFORMATION
  Report Type: Spontaneous
  Country: KR (occurrence: KR)
  Receive Date: 20170214
  Receipt Date: 20170220
  Transmission Date: 20170428
  Serious: No
  Sender: FDA-Public Use
  Company Number: KR-009507513-1702KOR005597

PATIENT
  Age: 63 Year
  Sex: Male
  Weight: 73.7 kg

DRUGS (11)
  1. EMEND (FOSAPREPITANT DIMEGLUMINE) [Suspect]
     Active Substance: FOSAPREPITANT DIMEGLUMINE
     Indication: PROPHYLAXIS OF NAUSEA AND VOMITING
     Dosage: 150 MG, ONCE
     Route: 042
     Dates: start: 20160919, end: 20160919
  2. CISPLATIN INJ [Concomitant]
     Indication: MALIGNANT NEOPLASM OF UNKNOWN PRIMARY SITE
     Dosage: STRENGTH: 50 MG / 100 ML; 187 MG, ONCE, CYCLE 1
     Route: 042
     Dates: start: 20160919, end: 20160919
  3. DEXAMETHASONE YUHAN TAB [Concomitant]
     Indication: PROPHYLAXIS OF NAUSEA AND VOMITING
     Dosage: 4 MG, BID
     Route: 048
     Dates: start: 20160920, end: 20160922
  4. CHLORPHENIRAMINE MALEATE HUONS INJ [Concomitant]
     Indication: PROPHYLAXIS
     Dosage: 4 MG, ONCE
     Route: 042
     Dates: start: 20160919, end: 20160919
  5. ALOXI INJ [Concomitant]
     Indication: PROPHYLAXIS OF NAUSEA AND VOMITING
     Dosage: 5 ML, ONCE
     Route: 042
     Dates: start: 20160919, end: 20160919
  6. CURAN TAB [Concomitant]
     Indication: PROPHYLAXIS
     Dosage: 150 MG, BID
     Route: 048
     Dates: start: 20160920, end: 20160922
  7. CENTRUM ADVANCE TAB [Concomitant]
     Indication: VITAMIN SUPPLEMENTATION
     Dosage: 1 TABLET, QD
     Route: 048
     Dates: start: 20160919, end: 20161124
  8. CURAN INJ [Concomitant]
     Indication: PROPHYLAXIS
     Dosage: STRENGTH: 50 MG / 2 ML; 50 MG, ONCE
     Route: 042
     Dates: start: 20160919, end: 20160919
  9. EMEND (FOSAPREPITANT DIMEGLUMINE) [Suspect]
     Active Substance: FOSAPREPITANT DIMEGLUMINE
     Dosage: 150 MG, ONCE
     Route: 042
     Dates: start: 20161017, end: 20161017
  10. DEXAMETHASONE YUHAN INJ [Concomitant]
     Indication: PROPHYLAXIS OF NAUSEA AND VOMITING
     Dosage: STRENGTH: 5 MG/ML; 20 MG, ONCE
     Route: 042
     Dates: start: 20160919, end: 20160919
  11. APETROL ES ORAL SUSP [Concomitant]
     Indication: DECREASED APPETITE
     Dosage: 5.2 ML, QD
     Route: 048
     Dates: start: 20160922, end: 20161010

REACTIONS (1)
  - Nausea [Recovered/Resolved]

NARRATIVE: CASE EVENT DATE: 20160925
